FAERS Safety Report 18492628 (Version 1)
Quarter: 2020Q4

REPORT INFORMATION
  Report Type: Spontaneous
  Country: US (occurrence: US)
  Receive Date: 20201111
  Receipt Date: 20201111
  Transmission Date: 20210114
  Serious: No
  Sender: FDA-Public Use
  Company Number: US-GALDERMA-US2020031067

PATIENT
  Age: 33 Year
  Sex: Female

DRUGS (3)
  1. CETAPHIL DAILY HYDRATING LOTION [Concomitant]
     Active Substance: COSMETICS
     Indication: PRODUCT USED FOR UNKNOWN INDICATION
     Route: 061
  2. DIFFERIN GEL [Suspect]
     Active Substance: ADAPALENE
     Indication: ACNE
     Dosage: AS NEEDED
     Route: 061
     Dates: start: 2018
  3. DIFFERIN OIL CONTROL MOISTURIZER SPF 30 [Suspect]
     Active Substance: AVOBENZONE\OCTISALATE\OCTOCRYLENE
     Indication: PROPHYLAXIS
     Dosage: 4 OZ
     Route: 061
     Dates: start: 20200625, end: 20200625

REACTIONS (4)
  - Application site pain [Recovered/Resolved]
  - Intentional product misuse [Recovered/Resolved]
  - Application site erythema [Not Recovered/Not Resolved]
  - Skin tightness [Not Recovered/Not Resolved]

NARRATIVE: CASE EVENT DATE: 2018
